FAERS Safety Report 8839751 (Version 2)
Quarter: 2012Q4

REPORT INFORMATION
  Report Type: Spontaneous
  Country: GB (occurrence: None)
  Receive Date: 20121011
  Receipt Date: 20121123
  Transmission Date: 20130627
  Serious: Yes (Other)
  Sender: FDA-Public Use
  Company Number: HRA-CDB20120273

PATIENT
  Age: 17 Year
  Sex: Female

DRUGS (1)
  1. ELLAONE [Suspect]
     Indication: CONTRACEPTION
     Dates: start: 20120531, end: 20120531

REACTIONS (2)
  - Pregnancy test positive [None]
  - Pregnancy [None]
